FAERS Safety Report 18713024 (Version 4)
Quarter: 2021Q1

REPORT INFORMATION
  Report Type: Report from Study
  Country: GB (occurrence: GB)
  Receive Date: 20210107
  Receipt Date: 20210317
  Transmission Date: 20210419
  Serious: Yes (Hospitalization, Other)
  Sender: FDA-Public Use
  Company Number: GB-SEATTLE GENETICS-2021SGN00030

PATIENT
  Sex: Male
  Weight: 91 kg

DRUGS (1)
  1. BRENTUXIMAB VEDOTIN?MPI [Suspect]
     Active Substance: BRENTUXIMAB VEDOTIN
     Indication: PERIPHERAL T-CELL LYMPHOMA UNSPECIFIED
     Dosage: 50 MILLIGRAM
     Route: 065
     Dates: start: 20201022

REACTIONS (3)
  - Cytomegalovirus infection [Recovering/Resolving]
  - COVID-19 pneumonia [Recovering/Resolving]
  - Weight decreased [Unknown]
